FAERS Safety Report 15623300 (Version 2)
Quarter: 2019Q1

REPORT INFORMATION
  Report Type: Spontaneous
  Country: JP (occurrence: JP)
  Receive Date: 20181115
  Receipt Date: 20190205
  Transmission Date: 20190417
  Serious: Yes (Death, Other)
  Sender: FDA-Public Use
  Company Number: JP-SPECTRUM PHARMACEUTICALS, INC.-18-F-JP-00412

PATIENT
  Age: 75 Year
  Sex: Male

DRUGS (8)
  1. CARBOPLATIN. [Concomitant]
     Active Substance: CARBOPLATIN
     Indication: BLASTIC PLASMACYTOID DENDRITIC CELL NEOPLASIA
  2. FOLOTYN [Suspect]
     Active Substance: PRALATREXATE
     Dosage: 20 MG/M2, UNK
     Route: 042
  3. FOLATE [Concomitant]
     Active Substance: FOLATE SODIUM
     Indication: SUPPLEMENTATION THERAPY
  4. FOLOTYN [Suspect]
     Active Substance: PRALATREXATE
     Indication: BLASTIC PLASMACYTOID DENDRITIC CELL NEOPLASIA
     Dosage: 30 MG/M2, WEEKLY OVER 3 MINUTES
     Route: 042
  5. ETOPOSIDE. [Concomitant]
     Active Substance: ETOPOSIDE
     Indication: BLASTIC PLASMACYTOID DENDRITIC CELL NEOPLASIA
  6. IFOSFAMIDE. [Concomitant]
     Active Substance: IFOSFAMIDE
     Indication: BLASTIC PLASMACYTOID DENDRITIC CELL NEOPLASIA
  7. DEXAMETHASONE. [Concomitant]
     Active Substance: DEXAMETHASONE
     Indication: BLASTIC PLASMACYTOID DENDRITIC CELL NEOPLASIA
  8. VITAMIN B12 [Concomitant]
     Active Substance: CYANOCOBALAMIN
     Indication: SUPPLEMENTATION THERAPY

REACTIONS (8)
  - Mucous membrane disorder [Recovering/Resolving]
  - Rash [Unknown]
  - Fall [Unknown]
  - Platelet count decreased [Unknown]
  - Diarrhoea [Unknown]
  - Off label use [Unknown]
  - Traumatic intracranial haemorrhage [Fatal]
  - Stomatitis [Unknown]
